FAERS Safety Report 16393841 (Version 1)
Quarter: 2019Q2

REPORT INFORMATION
  Report Type: Spontaneous
  Country: US (occurrence: US)
  Receive Date: 20190605
  Receipt Date: 20190605
  Transmission Date: 20190711
  Serious: No
  Sender: FDA-Public Use
  Company Number: US-PFIZER INC-2019241011

PATIENT
  Age: 47 Year

DRUGS (1)
  1. LYRICA CR [Suspect]
     Active Substance: PREGABALIN
     Dosage: UNK

REACTIONS (1)
  - Anxiety [Unknown]
